FAERS Safety Report 6649465-5 (Version None)
Quarter: 2010Q1

REPORT INFORMATION
  Report Type: 
  Country: None (occurrence: None)
  Receive Date: 20100322
  Receipt Date: 20100311
  Transmission Date: 20100710
  Serious: Yes (Hospitalization)
  Sender: FDA-Public Use
  Company Number: 2009AC000403

PATIENT
  Age: 64 Year
  Sex: Female

DRUGS (24)
  1. DIGOXIN [Suspect]
     Indication: ATRIAL FIBRILLATION
     Dosage: 0.25 MG;QD;PO
     Route: 048
     Dates: start: 20000401
  2. DIGOXIN [Suspect]
     Indication: HEART RATE IRREGULAR
     Dosage: 0.25 MG;QD;PO
     Route: 048
     Dates: start: 20000401
  3. PREDNISONE TAB [Concomitant]
  4. WARFARIN SODIUM [Concomitant]
  5. METOPROLOL TARTRATE [Concomitant]
  6. PROTONIX [Concomitant]
  7. PLAQUENIL [Concomitant]
  8. TOPROL-XL [Concomitant]
  9. CALCIUM [Concomitant]
  10. CELLCEPT [Concomitant]
  11. METHOTREXATE [Concomitant]
  12. FOLIC ACID [Concomitant]
  13. ACETAMINOPHIN [Concomitant]
  14. PANTOPRAZOLE [Concomitant]
  15. VITAMIN D [Concomitant]
  16. HYDROCODONE BITARTRATE [Concomitant]
  17. FOSAMAX [Concomitant]
  18. NEXIUM [Concomitant]
  19. FENTANYL-100 [Concomitant]
  20. COLCHICNE [Concomitant]
  21. COUMADIN [Concomitant]
  22. HYDROCHLOROTHIAZIDE [Concomitant]
  23. SIMVASTATIN [Concomitant]
  24. LOVENOX [Concomitant]

REACTIONS (28)
  - ANXIETY [None]
  - ATRIAL FIBRILLATION [None]
  - CHEST PAIN [None]
  - COLD SWEAT [None]
  - COUGH [None]
  - DYSPNOEA [None]
  - FALL [None]
  - HAEMATOMA [None]
  - HEADACHE [None]
  - HEART RATE IRREGULAR [None]
  - HYPERHIDROSIS [None]
  - HYPOAESTHESIA [None]
  - LEUKOCYTOCLASTIC VASCULITIS [None]
  - LYMPHADENOPATHY MEDIASTINAL [None]
  - METAMORPHOPSIA [None]
  - MUSCULOSKELETAL PAIN [None]
  - NAUSEA [None]
  - PAIN IN EXTREMITY [None]
  - PANCREATITIS [None]
  - PARAESTHESIA [None]
  - PURPURA [None]
  - STRESS [None]
  - SYNCOPE [None]
  - THERAPEUTIC AGENT TOXICITY [None]
  - URTICARIA [None]
  - VERTIGO [None]
  - VOMITING [None]
  - WEIGHT DECREASED [None]
